FAERS Safety Report 8093798-5 (Version None)
Quarter: 2012Q1

REPORT INFORMATION
  Report Type: 
  Country: None (occurrence: None)
  Receive Date: 20120129
  Receipt Date: 20110930
  Transmission Date: 20120608
  Serious: No
  Sender: FDA-Public Use
  Company Number: US-ABBOTT-11P-163-0860037-00

PATIENT
  Age: 49 Year
  Sex: Female

DRUGS (12)
  1. ESTRADIOL [Concomitant]
     Indication: HORMONE REPLACEMENT THERAPY
  2. CLONAZEPAM [Concomitant]
     Indication: ANXIETY
  3. KLOR-CON [Concomitant]
     Indication: BLOOD POTASSIUM DECREASED
  4. HUMIRA [Suspect]
     Indication: RHEUMATOID ARTHRITIS
     Dates: start: 20110912
  5. VITAMIN D [Concomitant]
     Indication: PRODUCT USED FOR UNKNOWN INDICATION
     Dosage: DAILY
  6. OXYGEN [Concomitant]
     Indication: GRANULOMA
     Dosage: CONTINUOUS
  7. PHENERGAN [Concomitant]
     Indication: NAUSEA
  8. INDOMETHACIN [Concomitant]
     Indication: INFLAMMATION
  9. IMURAN [Concomitant]
     Indication: PULMONARY FIBROSIS
     Dosage: EVERY MORNING
  10. RANITIDINE [Concomitant]
     Indication: DYSPEPSIA
  11. NORTRIPTYLINE HCL [Concomitant]
     Indication: DEPRESSION
  12. VERAPAMIL EXTENDED-RELEASE [Concomitant]
     Indication: HYPERTENSION

REACTIONS (1)
  - INFLUENZA LIKE ILLNESS [None]
